FAERS Safety Report 8202723-5 (Version None)
Quarter: 2012Q1

REPORT INFORMATION
  Report Type: 
  Country: None (occurrence: None)
  Receive Date: 20120312
  Receipt Date: 20120301
  Transmission Date: 20120608
  Serious: Yes (Hospitalization, Other)
  Sender: FDA-Public Use
  Company Number: US-ASTRAZENECA-2012SE14588

PATIENT
  Sex: Male

DRUGS (6)
  1. SEROQUEL XR [Suspect]
     Indication: BIPOLAR II DISORDER
     Route: 048
     Dates: start: 20050101
  2. SEROQUEL XR [Suspect]
     Indication: TACHYPHRENIA
     Route: 048
     Dates: start: 20050101
  3. ROBITUSSIN WITH CODIENE [Concomitant]
  4. KLONOPIN [Concomitant]
  5. PREDNISONE [Concomitant]
  6. PROZAC [Concomitant]

REACTIONS (7)
  - INFLUENZA [None]
  - MALAISE [None]
  - HYPERHIDROSIS [None]
  - OFF LABEL USE [None]
  - SPINAL OSTEOARTHRITIS [None]
  - NASOPHARYNGITIS [None]
  - HEPATITIS B [None]
